FAERS Safety Report 4396114-5 (Version None)
Quarter: 2004Q3

REPORT INFORMATION
  Report Type: 
  Country: None (occurrence: None)
  Receive Date: 20040707
  Receipt Date: 20040624
  Transmission Date: 20050211
  Serious: Yes (Hospitalization)
  Sender: FDA-Public Use
  Company Number: 2004PK01113

PATIENT
  Sex: Female

DRUGS (1)
  1. NAROPIN [Suspect]
     Indication: CAESAREAN SECTION
     Dosage: 7.5 MG/ML ONCE ED
     Route: 008

REACTIONS (1)
  - ANAESTHETIC COMPLICATION [None]
